FAERS Safety Report 22313575 (Version 2)
Quarter: 2024Q1

REPORT INFORMATION
  Report Type: Spontaneous
  Country: US (occurrence: US)
  Receive Date: 20230512
  Receipt Date: 20240219
  Transmission Date: 20240409
  Serious: Yes (Other)
  Sender: FDA-Public Use
  Company Number: US-REGENERON PHARMACEUTICALS, INC.-2023-063469

PATIENT
  Sex: Female

DRUGS (4)
  1. EYLEA [Suspect]
     Active Substance: AFLIBERCEPT
     Indication: Diabetic retinopathy
     Dosage: 2 MG, EVERY 4-6 WEEKS, INTO RIGHT EYE, FORMULATION: UNKNOWN
     Dates: start: 202201
  2. EYLEA [Suspect]
     Active Substance: AFLIBERCEPT
     Indication: Scar
     Dosage: 4 MG, EVERY 4-6 WEEKS, INTO RIGHT EYE, FORMULATION: UNKNOWN
     Dates: start: 202205
  3. EYLEA [Suspect]
     Active Substance: AFLIBERCEPT
     Indication: Diabetic retinal oedema
     Dosage: BACK TO 2 MG, EVERY 4-6 WEEKS, INTO RIGHT EYE, FORMULATION: UNKNOWN
  4. INSULIN NOS [Concomitant]
     Active Substance: INSULIN NOS
     Indication: Product used for unknown indication

REACTIONS (6)
  - Blindness transient [Unknown]
  - Blood pressure systolic increased [Unknown]
  - Eye irritation [Unknown]
  - Eye swelling [Unknown]
  - Incorrect dose administered [Unknown]
  - Therapeutic response shortened [Unknown]

NARRATIVE: CASE EVENT DATE: 20220101
